FAERS Safety Report 20699267 (Version 1)
Quarter: 2022Q2

REPORT INFORMATION
  Report Type: Spontaneous
  Country: US (occurrence: None)
  Receive Date: 20220411
  Receipt Date: 20220411
  Transmission Date: 20220721
  Serious: Yes (Hospitalization)
  Sender: FDA-Public Use
  Company Number: None

PATIENT
  Age: 53 Year
  Sex: Male
  Weight: 104.33 kg

DRUGS (1)
  1. PRAZOSIN HYDROCHLORIDE [Suspect]
     Active Substance: PRAZOSIN HYDROCHLORIDE
     Indication: Hypertension
     Dosage: OTHER FREQUENCY : HS;?
     Route: 048
     Dates: start: 20211018, end: 20211024

REACTIONS (2)
  - Dizziness [None]
  - Hypotension [None]
